FAERS Safety Report 5523029-9 (Version None)
Quarter: 2007Q4

REPORT INFORMATION
  Report Type: 
  Country: None (occurrence: None)
  Receive Date: 20071116
  Receipt Date: 20071116
  Transmission Date: 20080405
  Serious: Yes (Other)
  Sender: FDA-Public Use
  Company Number: None

PATIENT
  Age: 40 Year
  Sex: Female
  Weight: 49.4421 kg

DRUGS (1)
  1. PROVIGIL [Suspect]
     Indication: DRUG THERAPY
     Dosage: 1 TABLET 2 TIMES A DAY PO
     Route: 048
     Dates: start: 20071025, end: 20071115

REACTIONS (11)
  - ANXIETY [None]
  - CHEST PAIN [None]
  - COUGH [None]
  - DRY THROAT [None]
  - DYSPNOEA [None]
  - FEELING ABNORMAL [None]
  - HAND DEFORMITY [None]
  - HYPERVENTILATION [None]
  - PARAESTHESIA [None]
  - PHARYNGOLARYNGEAL PAIN [None]
  - PRURITUS [None]
